FAERS Safety Report 5781621-0 (Version None)
Quarter: 2008Q2

REPORT INFORMATION
  Report Type: 
  Country: None (occurrence: None)
  Receive Date: 20080623
  Receipt Date: 20080612
  Transmission Date: 20081010
  Serious: Yes (Hospitalization)
  Sender: FDA-Public Use
  Company Number: DE-JNJFOC-20060703463

PATIENT
  Age: 13 Year
  Sex: Male

DRUGS (1)
  1. CONCERTA [Suspect]
     Indication: ATTENTION DEFICIT/HYPERACTIVITY DISORDER
     Dosage: 36 MG AND 54 MG
     Route: 048

REACTIONS (5)
  - ATAXIA [None]
  - EYE DISORDER [None]
  - HALLUCINATION, VISUAL [None]
  - TENSION [None]
  - VERTIGO [None]
